FAERS Safety Report 8936504 (Version 1)
Quarter: 2012Q4

REPORT INFORMATION
  Report Type: 
  Country: US (occurrence: US)
  Receive Date: 20121130
  Receipt Date: 20121130
  Transmission Date: 20130627
  Serious: Yes (Hospitalization)
  Sender: FDA-Public Use
  Company Number: US-NOVOPROD-364646

PATIENT
  Age: 37 Year
  Sex: Female

DRUGS (1)
  1. NOVOLOG [Suspect]
     Indication: OFF LABEL USE

REACTIONS (2)
  - Intentional drug misuse [Recovered/Resolved]
  - Hypoglycaemia [Recovered/Resolved]
